FAERS Safety Report 13820567 (Version 1)
Quarter: 2017Q3

REPORT INFORMATION
  Report Type: Spontaneous
  Country: US (occurrence: US)
  Receive Date: 20170801
  Receipt Date: 20170801
  Transmission Date: 20171127
  Serious: No
  Sender: FDA-Public Use
  Company Number: US-JNJFOC-20170713105

PATIENT
  Age: 61 Year
  Sex: Female

DRUGS (4)
  1. NORETHINDRONE. [Suspect]
     Active Substance: NORETHINDRONE
     Indication: HOT FLUSH
     Route: 065
     Dates: start: 20170501
  2. ESTRADIOL. [Suspect]
     Active Substance: ESTRADIOL
     Indication: INSOMNIA
     Route: 065
     Dates: start: 20170501
  3. NORETHINDRONE. [Suspect]
     Active Substance: NORETHINDRONE
     Indication: INSOMNIA
     Route: 065
     Dates: start: 20170501
  4. ESTRADIOL. [Suspect]
     Active Substance: ESTRADIOL
     Indication: HOT FLUSH
     Route: 065
     Dates: start: 20170501

REACTIONS (3)
  - Metrorrhagia [Recovered/Resolved]
  - Product use in unapproved indication [Unknown]
  - Off label use [Unknown]

NARRATIVE: CASE EVENT DATE: 20170501
